FAERS Safety Report 9570687 (Version 1)
Quarter: 2013Q4

REPORT INFORMATION
  Report Type: Spontaneous
  Country: US (occurrence: US)
  Receive Date: 20131001
  Receipt Date: 20131001
  Transmission Date: 20140711
  Serious: No
  Sender: FDA-Public Use
  Company Number: US-009507513-1309USA013174

PATIENT
  Sex: Female

DRUGS (4)
  1. JANUVIA [Suspect]
     Dosage: 100 MG, UNK
     Route: 048
     Dates: start: 2008
  2. JANUVIA [Suspect]
     Dosage: 100 MG, JANUVIA RESTARTED
  3. AVAPRO [Concomitant]
  4. LIPITOR [Concomitant]

REACTIONS (2)
  - Headache [Recovered/Resolved]
  - Headache [Recovering/Resolving]
